FAERS Safety Report 15637060 (Version 4)
Quarter: 2018Q4

REPORT INFORMATION
  Report Type: Report from Study
  Country: CA (occurrence: CA)
  Receive Date: 20181120
  Receipt Date: 20181218
  Transmission Date: 20190205
  Serious: Yes (Other)
  Sender: FDA-Public Use
  Company Number: CA-ROCHE-2216314

PATIENT
  Sex: Male

DRUGS (4)
  1. CLOBETASOL [Concomitant]
     Active Substance: CLOBETASOL
  2. PREDNISONE. [Concomitant]
     Active Substance: PREDNISONE
  3. CELLCEPT [Suspect]
     Active Substance: MYCOPHENOLATE MOFETIL\MYCOPHENOLATE MOFETIL HYDROCHLORIDE
     Indication: PRODUCT USED FOR UNKNOWN INDICATION
     Route: 065
  4. RITUXAN [Suspect]
     Active Substance: RITUXIMAB
     Indication: PEMPHIGUS
     Route: 065

REACTIONS (3)
  - Optic nerve disorder [Unknown]
  - Pemphigus [Recovered/Resolved]
  - Visual impairment [Not Recovered/Not Resolved]
